FAERS Safety Report 17724660 (Version 1)
Quarter: 2020Q2

REPORT INFORMATION
  Report Type: Spontaneous
  Country: US (occurrence: US)
  Receive Date: 20200429
  Receipt Date: 20200429
  Transmission Date: 20200714
  Serious: Yes (Other)
  Sender: FDA-Public Use
  Company Number: None

PATIENT
  Age: 58 Year
  Sex: Female
  Weight: 69.75 kg

DRUGS (10)
  1. LIVALO [Suspect]
     Active Substance: PITAVASTATIN CALCIUM
     Indication: BLOOD CHOLESTEROL INCREASED
     Dosage: ?          QUANTITY:1 TABLET(S);?
     Route: 048
     Dates: start: 20191215, end: 20200301
  2. HYDROCHLOROTHIAZIDE. [Concomitant]
     Active Substance: HYDROCHLOROTHIAZIDE
  3. PANTANSE NASAL SPRAY [Concomitant]
  4. PROTONICS [Concomitant]
  5. ASA [Concomitant]
     Active Substance: ASPIRIN
  6. BLACK COHOSH [Concomitant]
     Active Substance: BLACK COHOSH
  7. LISINOPRIL. [Concomitant]
     Active Substance: LISINOPRIL
  8. TYLENOL [Concomitant]
     Active Substance: ACETAMINOPHEN
  9. NSAID [Concomitant]
     Active Substance: UNSPECIFIED INGREDIENT
  10. VITAMINS [Concomitant]
     Active Substance: VITAMINS

REACTIONS (6)
  - Anxiety [None]
  - Affective disorder [None]
  - Muscle spasms [None]
  - Suicidal ideation [None]
  - Depression [None]
  - Ageusia [None]

NARRATIVE: CASE EVENT DATE: 20200228
